FAERS Safety Report 15290025 (Version 1)
Quarter: 2018Q3

REPORT INFORMATION
  Report Type: Spontaneous
  Country: US (occurrence: US)
  Receive Date: 20180817
  Receipt Date: 20180817
  Transmission Date: 20181010
  Serious: Yes (Hospitalization, Other)
  Sender: FDA-Public Use
  Company Number: US-SA-2018SA155764

PATIENT
  Age: 63 Year
  Sex: Female

DRUGS (1)
  1. AMBIEN [Suspect]
     Active Substance: ZOLPIDEM TARTRATE
     Route: 065

REACTIONS (38)
  - Vitamin B complex deficiency [Unknown]
  - Memory impairment [Unknown]
  - Fall [Unknown]
  - Glaucoma [Unknown]
  - Vitamin D decreased [Unknown]
  - Rotator cuff syndrome [Unknown]
  - Decreased appetite [Unknown]
  - Chest pain [Unknown]
  - Cardiac failure congestive [Unknown]
  - Joint swelling [Unknown]
  - Influenza like illness [Unknown]
  - Vocal cord paralysis [Unknown]
  - Pyrexia [Unknown]
  - Paraesthesia [Unknown]
  - Lung operation [Unknown]
  - Intracardiac mass [Unknown]
  - Cardiac disorder [Unknown]
  - Malaise [Unknown]
  - Brain natriuretic peptide abnormal [Unknown]
  - Feeling abnormal [Unknown]
  - Pulmonary mass [Unknown]
  - Weight decreased [Unknown]
  - Gastroenteritis viral [Unknown]
  - Abdominal discomfort [Unknown]
  - Influenza [Unknown]
  - Lactose intolerance [Unknown]
  - Terminal state [Unknown]
  - Gait disturbance [Unknown]
  - Bedridden [Unknown]
  - Mass [Unknown]
  - Feeling cold [Unknown]
  - Diarrhoea [Unknown]
  - Pneumonia [Unknown]
  - Pain [Unknown]
  - Insomnia [Unknown]
  - Ill-defined disorder [Unknown]
  - Feeding disorder [Unknown]
  - Unevaluable event [Unknown]
